FAERS Safety Report 19890493 (Version 1)
Quarter: 2021Q3

REPORT INFORMATION
  Report Type: Report from Study
  Country: FR (occurrence: FR)
  Receive Date: 20210927
  Receipt Date: 20210927
  Transmission Date: 20211014
  Serious: Yes (Death, Other)
  Sender: FDA-Public Use
  Company Number: FR-TAKEDA-2021TUS059575

PATIENT

DRUGS (5)
  1. DEXAMETHASONE. [Suspect]
     Active Substance: DEXAMETHASONE
     Dosage: 20 MILLIGRAM
     Route: 048
  2. DEXAMETHASONE. [Suspect]
     Active Substance: DEXAMETHASONE
     Dosage: 40 MILLIGRAM
     Route: 048
  3. DEXAMETHASONE. [Suspect]
     Active Substance: DEXAMETHASONE
     Indication: CARDIAC AMYLOIDOSIS
     Dosage: 10 MILLIGRAM
     Route: 048
  4. CYCLOPHOSPHAMIDE. [Suspect]
     Active Substance: CYCLOPHOSPHAMIDE
     Indication: CARDIAC AMYLOIDOSIS
     Dosage: 300 MILLIGRAM/SQ. METER
     Route: 048
  5. BORTEZOMIB. [Suspect]
     Active Substance: BORTEZOMIB
     Indication: CARDIAC AMYLOIDOSIS
     Dosage: 1.3 MILLIGRAM/SQ. METER
     Route: 058

REACTIONS (4)
  - Cardiogenic shock [Fatal]
  - Off label use [Unknown]
  - Infection [Fatal]
  - Product use in unapproved indication [Unknown]
